FAERS Safety Report 4456678-X (Version None)
Quarter: 2004Q3

REPORT INFORMATION
  Report Type: 
  Country: None (occurrence: None)
  Receive Date: 20040921
  Receipt Date: 20040908
  Transmission Date: 20050211
  Serious: Yes (Hospitalization, Other)
  Sender: FDA-Public Use
  Company Number: 2004064575

PATIENT
  Age: 44 Year
  Sex: Male

DRUGS (7)
  1. LIPITOR [Suspect]
     Indication: HYPERCHOLESTEROLAEMIA
     Dosage: 20 MG (20 MG, 1 IN 1 D) ORAL
     Route: 048
     Dates: start: 20030801, end: 20040427
  2. EZETIMIBE (EZETIMIBE) [Suspect]
     Indication: HYPERCHOLESTEROLAEMIA
     Dosage: 10 MG (10 MG, 1 IN 1 D), ORAL
     Route: 048
     Dates: start: 20040420
  3. METOPROLOL SUCCINATE [Concomitant]
  4. INSULIN LISPRO (INSULIN LISPRO) [Concomitant]
  5. LOSARTAN POTASSIUM [Concomitant]
  6. INSULIN GLARGINE (INSULIN GLARGINE) [Concomitant]
  7. LISINOPRIL [Concomitant]

REACTIONS (6)
  - FATIGUE [None]
  - FEELING ABNORMAL [None]
  - PYREXIA [None]
  - RHABDOMYOLYSIS [None]
  - TREATMENT NONCOMPLIANCE [None]
  - TROPONIN I INCREASED [None]
